FAERS Safety Report 10041369 (Version 3)
Quarter: 2014Q2

REPORT INFORMATION
  Report Type: Spontaneous
  Country: US (occurrence: US)
  Receive Date: 20140327
  Receipt Date: 20140521
  Transmission Date: 20141212
  Serious: Yes (Hospitalization, Other)
  Sender: FDA-Public Use
  Company Number: US-009507513-1403USA010188

PATIENT
  Age: 18 Year
  Sex: Female
  Weight: 43.84 kg

DRUGS (1)
  1. NEXPLANON [Suspect]
     Indication: CONTRACEPTION
     Dosage: 1 UNK, UNK
     Route: 059
     Dates: start: 20130917, end: 20140320

REACTIONS (4)
  - Surgery [Recovered/Resolved]
  - Device difficult to use [Recovered/Resolved]
  - Metrorrhagia [Recovered/Resolved]
  - Device dislocation [Recovered/Resolved]
